FAERS Safety Report 8558776-8 (Version None)
Quarter: 2012Q3

REPORT INFORMATION
  Report Type: 
  Country: None (occurrence: None)
  Receive Date: 20120801
  Receipt Date: 20120724
  Transmission Date: 20120928
  Serious: No
  Sender: FDA-Public Use
  Company Number: US-009507513-1207USA006166

PATIENT

DRUGS (2)
  1. JANUVIA [Suspect]
     Dosage: 50 MG, QD
     Route: 048
  2. JANUVIA [Suspect]
     Indication: DIABETES MELLITUS
     Dosage: 100 MG, QD
     Route: 048
     Dates: start: 20090201

REACTIONS (2)
  - RENAL DISORDER [None]
  - PANCREATIC MASS [None]
